FAERS Safety Report 8578279-4 (Version None)
Quarter: 2012Q3

REPORT INFORMATION
  Report Type: 
  Country: None (occurrence: None)
  Receive Date: 20120808
  Receipt Date: 20120720
  Transmission Date: 20120928
  Serious: Yes (Other)
  Sender: FDA-Public Use
  Company Number: US-JNJCP-30000120724

PATIENT
  Age: 38 Year
  Sex: Female
  Weight: 64 kg

DRUGS (2)
  1. ESTROVEN [Concomitant]
     Indication: MENOPAUSE
     Dosage: ONE PILL DAILY
  2. NEUTROGENA OIL FREE ACNE WASH PINK GRAPEFRUIT FACIAL CLEANSER [Suspect]
     Dosage: ONE PUMP, ONCE A DAY
     Route: 061
     Dates: start: 20120716, end: 20120718

REACTIONS (7)
  - DYSPNOEA [None]
  - APPLICATION SITE SWELLING [None]
  - NASAL CONGESTION [None]
  - APPLICATION SITE PAIN [None]
  - THROAT TIGHTNESS [None]
  - APPLICATION SITE ERYTHEMA [None]
  - APPLICATION SITE PRURITUS [None]
